FAERS Safety Report 17221239 (Version 1)
Quarter: 2019Q4

REPORT INFORMATION
  Report Type: Spontaneous
  Country: US (occurrence: US)
  Receive Date: 20191231
  Receipt Date: 20191231
  Transmission Date: 20200122
  Serious: No
  Sender: FDA-Public Use
  Company Number: US-FOUNDATIONCONSUMERHC-2019-US-018581

PATIENT
  Age: 38 Year
  Sex: Female
  Weight: 77.11 kg

DRUGS (4)
  1. PLAN B ONE-STEP [Suspect]
     Active Substance: LEVONORGESTREL
     Indication: POST COITAL CONTRACEPTION
     Dosage: 1.5 MG X 1 DOSE
     Route: 048
     Dates: start: 20190923, end: 20190923
  2. TURMERIC [Concomitant]
     Active Substance: HERBALS\TURMERIC
  3. UNSPECIFIED VITAMINS [Concomitant]
     Active Substance: VITAMINS
  4. HCTZ [Concomitant]
     Active Substance: HYDROCHLOROTHIAZIDE

REACTIONS (4)
  - Fatigue [Recovering/Resolving]
  - Headache [Recovered/Resolved]
  - Irritability [Recovering/Resolving]
  - Mood swings [Recovering/Resolving]

NARRATIVE: CASE EVENT DATE: 20190927
